FAERS Safety Report 6618209-5 (Version None)
Quarter: 2010Q1

REPORT INFORMATION
  Report Type: 
  Country: None (occurrence: None)
  Receive Date: 20100308
  Receipt Date: 20100224
  Transmission Date: 20100710
  Serious: Yes (Death, Hospitalization)
  Sender: FDA-Public Use
  Company Number: JP-PFIZER INC-2009280227

PATIENT
  Age: 72 Year
  Sex: Male
  Weight: 48.7 kg

DRUGS (5)
  1. SUNITINIB MALATE [Suspect]
     Indication: RENAL CELL CARCINOMA
     Dosage: 37.5 MG, 1X/DAY
     Dates: start: 20090824, end: 20090918
  2. CIMETIDINE [Concomitant]
     Dosage: UNK
     Route: 048
     Dates: end: 20090918
  3. BIOFERMIN [Concomitant]
     Dosage: UNK
     Route: 048
     Dates: end: 20090918
  4. LAC B [Concomitant]
     Dosage: UNK
     Route: 048
     Dates: end: 20090918
  5. LOPEMIN [Concomitant]
     Dosage: UNK
     Route: 048
     Dates: end: 20090918

REACTIONS (2)
  - ASPIRATION [None]
  - BRAIN OEDEMA [None]
